FAERS Safety Report 5640608-9 (Version None)
Quarter: 2008Q1

REPORT INFORMATION
  Report Type: 
  Country: None (occurrence: None)
  Receive Date: 20080227
  Receipt Date: 20080214
  Transmission Date: 20080703
  Serious: Yes (Hospitalization)
  Sender: FDA-Public Use
  Company Number: AT-AMGEN-UK265931

PATIENT
  Age: 45 Year
  Sex: Female

DRUGS (11)
  1. NEUPOGEN [Suspect]
     Indication: CHEMOTHERAPY
  2. EPIRUBICIN [Suspect]
     Dates: start: 20080109
  3. CYCLOPHOSPHAMIDE [Suspect]
     Dates: start: 20080109
  4. CIPROFLOXACIN [Suspect]
     Dates: start: 20080126, end: 20080204
  5. PANTOPRAZOLE SODIUM [Concomitant]
  6. EMEND [Concomitant]
  7. AKTIFERRIN [Concomitant]
  8. TRITTICO [Concomitant]
  9. LAEVOLAC [Concomitant]
  10. NAVOBAN [Concomitant]
  11. CORTISONE [Concomitant]

REACTIONS (2)
  - LIVER DISORDER [None]
  - VASCULITIS [None]
